FAERS Safety Report 16122262 (Version 1)
Quarter: 2019Q1

REPORT INFORMATION
  Report Type: Spontaneous
  Country: SK (occurrence: SK)
  Receive Date: 20190327
  Receipt Date: 20190327
  Transmission Date: 20190418
  Serious: Yes (Death)
  Sender: FDA-Public Use
  Company Number: SK-ACCORD-116158

PATIENT
  Age: 64 Year
  Sex: Male

DRUGS (4)
  1. UNASYN [Concomitant]
     Active Substance: AMPICILLIN SODIUM\SULBACTAM SODIUM
     Route: 042
     Dates: start: 2015, end: 2015
  2. VULMIZOLIN [Concomitant]
     Indication: PROPHYLAXIS
     Route: 042
     Dates: start: 2015, end: 2015
  3. CLOPIDOGREL [Suspect]
     Active Substance: CLOPIDOGREL BISULFATE
     Indication: PRODUCT USED FOR UNKNOWN INDICATION
     Dates: start: 2015, end: 2015
  4. ACETYLSALICYLIC ACID [Concomitant]
     Active Substance: ASPIRIN
     Dates: start: 2015, end: 2015

REACTIONS (5)
  - Cardiopulmonary failure [Fatal]
  - Reperfusion injury [Fatal]
  - Pulmonary oedema [Fatal]
  - Hepatorenal failure [Fatal]
  - Respiratory failure [Fatal]

NARRATIVE: CASE EVENT DATE: 2015
